FAERS Safety Report 4673097-1 (Version None)
Quarter: 2005Q2

REPORT INFORMATION
  Report Type: 
  Country: None (occurrence: None)
  Receive Date: 20050524
  Receipt Date: 20050524
  Transmission Date: 20051028
  Serious: No
  Sender: FDA-Public Use
  Company Number: None

PATIENT
  Sex: Male

DRUGS (1)
  1. PRIMIDONE [Suspect]
     Indication: TREMOR
     Dosage: 25MG  THREE TIME DAI   ORAL
     Route: 048
     Dates: start: 20050216, end: 20050302

REACTIONS (3)
  - ABNORMAL BEHAVIOUR [None]
  - HYPERHIDROSIS [None]
  - PARAESTHESIA [None]
